FAERS Safety Report 9613770 (Version 4)
Quarter: 2014Q1

REPORT INFORMATION
  Report Type: Report from Study
  Country: IT (occurrence: IT)
  Receive Date: 20131010
  Receipt Date: 20140314
  Transmission Date: 20141002
  Serious: Yes (Hospitalization, Other)
  Sender: FDA-Public Use
  Company Number: IT-009507513-1310ITA000390

PATIENT
  Age: 60 Year
  Sex: Female
  Weight: 56.5 kg

DRUGS (10)
  1. BOCEPREVIR [Suspect]
     Indication: HEPATIC CIRRHOSIS
     Dosage: DOSE: 2400 MG QD
     Route: 048
     Dates: start: 20130403
  2. BOCEPREVIR [Suspect]
     Indication: HEPATITIS C
  3. PEGINTRON [Suspect]
     Indication: HEPATIC CIRRHOSIS
     Dosage: 80 MICROGRAM, QW, FORMULATION: PEN
     Route: 058
     Dates: start: 20130306
  4. PEGINTRON [Suspect]
     Indication: HEPATITIS C
  5. RIBAVIRIN [Suspect]
     Indication: HEPATIC CIRRHOSIS
     Dosage: 800 MG, QD
     Route: 048
     Dates: start: 20130306, end: 20130928
  6. RIBAVIRIN [Suspect]
     Indication: HEPATITIS C
     Dosage: UNK
     Route: 048
     Dates: start: 20131005
  7. ATENOLOL [Concomitant]
     Indication: HYPERTENSION
     Dosage: 50 MG, QD
     Route: 048
     Dates: start: 20130410
  8. ATENOLOL [Concomitant]
     Dosage: 100 MG, QD
     Route: 048
     Dates: start: 20100126
  9. OMEPRAZOLE [Concomitant]
     Indication: DYSPEPSIA
     Dosage: 20 MG, QD
     Route: 048
     Dates: start: 20130529
  10. EPOETIN [Concomitant]
     Indication: ANAEMIA
     Dosage: DOSE: 40000 UI
     Route: 058
     Dates: start: 20130904, end: 20130927

REACTIONS (4)
  - Hypotension [Recovered/Resolved]
  - Asthenia [Recovering/Resolving]
  - Pyrexia [Recovered/Resolved]
  - Anaemia [Recovering/Resolving]
